FAERS Safety Report 19094901 (Version 1)
Quarter: 2021Q2

REPORT INFORMATION
  Report Type: Other
  Country: FR (occurrence: FR)
  Receive Date: 20210405
  Receipt Date: 20210405
  Transmission Date: 20210717
  Serious: Yes (Hospitalization, Other)
  Sender: FDA-Public Use
  Company Number: FR-VALIDUS PHARMACEUTICALS LLC-FR-2021VAL000589

PATIENT
  Age: 32 Year
  Sex: Male

DRUGS (3)
  1. FLAGYL [Suspect]
     Active Substance: METRONIDAZOLE\METRONIDAZOLE HYDROCHLORIDE
     Indication: PRODUCT USED FOR UNKNOWN INDICATION
     Dosage: UNK
     Route: 042
     Dates: start: 20120525, end: 20120612
  2. CLAFORAN [Suspect]
     Active Substance: CEFOTAXIME SODIUM
     Indication: EMPYEMA
     Dosage: 4 G, TID
     Route: 042
     Dates: start: 20120525, end: 20120612
  3. FOSFOCINE [Suspect]
     Active Substance: FOSFOMYCIN
     Indication: EMPYEMA
     Dosage: UNK
     Route: 042
     Dates: start: 20120525, end: 20120612

REACTIONS (1)
  - Hepatic cytolysis [Recovered/Resolved]

NARRATIVE: CASE EVENT DATE: 20120612
